FAERS Safety Report 5061473-7 (Version None)
Quarter: 2006Q3

REPORT INFORMATION
  Report Type: 
  Country: None (occurrence: None)
  Receive Date: 20060703
  Receipt Date: 20060417
  Transmission Date: 20061208
  Serious: No
  Sender: FDA-Public Use
  Company Number: 2006PV012191

PATIENT
  Age: 52 Year
  Sex: Male

DRUGS (2)
  1. SYMLIN [Suspect]
     Indication: DIABETES MELLITUS NON-INSULIN-DEPENDENT
     Dosage: SEE IMAGE
     Route: 058
     Dates: start: 20060416
  2. HUMALOG R AND NPH MIXTURE [Concomitant]

REACTIONS (2)
  - EARLY SATIETY [None]
  - NAUSEA [None]
